FAERS Safety Report 18499596 (Version 1)
Quarter: 2020Q4

REPORT INFORMATION
  Report Type: Spontaneous
  Country: GB (occurrence: GB)
  Receive Date: 20201113
  Receipt Date: 20201113
  Transmission Date: 20210114
  Serious: Yes (Other)
  Sender: FDA-Public Use
  Company Number: GB-TEVA-2020-GB-1847688

PATIENT
  Age: 49 Year
  Sex: Female
  Weight: 72 kg

DRUGS (19)
  1. SOLIFENACIN [Concomitant]
     Active Substance: SOLIFENACIN
     Dosage: 1 DOSAGE FORMS
     Dates: start: 20200622, end: 20201014
  2. HYDROCORTISONE. [Concomitant]
     Active Substance: HYDROCORTISONE
     Dosage: APPLY, 2 DOSAGE FORMS
     Dates: start: 20200819, end: 20200821
  3. CARBOMER 980 [Concomitant]
     Active Substance: CARBOMER HOMOPOLYMER TYPE C (ALLYL PENTAERYTHRITOL CROSSLINKED)
     Dosage: 3-4 TIMES A DAY, 1 GTT
     Dates: start: 20200622
  4. DESOGESTREL [Concomitant]
     Active Substance: DESOGESTREL
     Dosage: 1 DOSAGE FORMS
     Dates: start: 20200504
  5. ZAPAIN [Concomitant]
     Active Substance: ACETAMINOPHEN\CODEINE PHOSPHATE
     Dosage: TAKE 1 OR 2, 4 TIMES A DAY
     Dates: start: 20200622
  6. MEBEVERINE HYDROCHLORIDE [Concomitant]
     Active Substance: MEBEVERINE HYDROCHLORIDE
     Dosage: 2 DOSAGE FORMS
     Dates: start: 20200622
  7. SUMATRIPTAN. [Concomitant]
     Active Substance: SUMATRIPTAN
     Indication: MIGRAINE
     Dosage: AS DIRECTED AT ONSET OF MIGRAINE, 1 DOSAGE FORMS
     Dates: start: 20200622
  8. LANSOPRAZOLE. [Concomitant]
     Active Substance: LANSOPRAZOLE
     Dosage: 1 DOSAGE FORMS
     Dates: start: 20201008
  9. MIRTAZAPINE. [Concomitant]
     Active Substance: MIRTAZAPINE
     Dosage: USE AS DIRECTED
     Dates: start: 20200522
  10. SUKKARTO [Concomitant]
     Active Substance: METFORMIN HYDROCHLORIDE
     Dosage: 1 DOSAGE FORMS
     Dates: start: 20200522
  11. SODIUM VALPROATE [Concomitant]
     Active Substance: VALPROATE SODIUM
     Dosage: 2 DOSAGE FORMS
     Dates: start: 20190919
  12. NAPROXEN. [Concomitant]
     Active Substance: NAPROXEN
     Dosage: AFTER FOOD, 2 DOSAGE FORMS
     Dates: start: 20200727, end: 20200810
  13. DICLOFENAC DIETHYLAMINE [Concomitant]
     Active Substance: DICLOFENAC DIETHYLAMINE
     Dosage: APPLY, 2 DOSAGE FORMS
     Dates: start: 20200907, end: 20201007
  14. HYPROMELLOSE [Concomitant]
     Active Substance: HYPROMELLOSES
     Dosage: INTO THE AFFECTED EYE(S), 1 GTT
     Route: 031
     Dates: start: 20200622
  15. RAMIPRIL. [Suspect]
     Active Substance: RAMIPRIL
     Dosage: 5 MG
     Dates: start: 20201014
  16. INDAPAMIDE. [Concomitant]
     Active Substance: INDAPAMIDE
     Dosage: 1 DOSAGE FORMS DAILY; EACH MORNING
     Dates: start: 20200424
  17. PREDNISOLONE. [Concomitant]
     Active Substance: PREDNISOLONE
     Dosage: 8 DOSAGE FORMS
     Dates: start: 20200917, end: 20200922
  18. FOSTAIR [Concomitant]
     Active Substance: BECLOMETHASONE\FORMOTEROL
     Dosage: PUFFS, 4 DOSAGE FORMS
     Dates: start: 20200522
  19. MIRABEGRON [Concomitant]
     Active Substance: MIRABEGRON
     Dosage: 1 DOSAGE FORMS
     Dates: start: 20200927

REACTIONS (2)
  - Asthma [Unknown]
  - Dyspnoea [Unknown]

NARRATIVE: CASE EVENT DATE: 20201016
